FAERS Safety Report 4942223-9 (Version None)
Quarter: 2006Q1

REPORT INFORMATION
  Report Type: 
  Country: None (occurrence: None)
  Receive Date: 20060313
  Receipt Date: 20050919
  Transmission Date: 20060701
  Serious: No
  Sender: FDA-Public Use
  Company Number: US-GLAXOSMITHKLINE-A0574709A

PATIENT
  Age: 34 Year

DRUGS (1)
  1. NICORETTE (MINT) [Suspect]

REACTIONS (1)
  - DRUG INEFFECTIVE [None]
